FAERS Safety Report 23966255 (Version 1)
Quarter: 2024Q2

REPORT INFORMATION
  Report Type: Spontaneous
  Country: US (occurrence: US)
  Receive Date: 20240612
  Receipt Date: 20240612
  Transmission Date: 20240715
  Serious: Yes (Hospitalization, Other)
  Sender: FDA-Public Use
  Company Number: US-HIKMA PHARMACEUTICALS USA INC.-US-H14001-24-05132

PATIENT

DRUGS (2)
  1. ROBAXIN [Suspect]
     Active Substance: METHOCARBAMOL
     Indication: Product used for unknown indication
     Dosage: UNK
     Route: 065
  2. METAXALONE [Concomitant]
     Active Substance: METAXALONE
     Indication: Cerebrovascular accident
     Dosage: 1800 MILLIGRAM, QD
     Route: 048

REACTIONS (2)
  - Tachycardia [Unknown]
  - Myocardial infarction [Unknown]
